FAERS Safety Report 7161593-7 (Version None)
Quarter: 2010Q4

REPORT INFORMATION
  Report Type: 
  Country: None (occurrence: None)
  Receive Date: 20101201
  Receipt Date: 20101112
  Transmission Date: 20110411
  Serious: Yes (Hospitalization, Other)
  Sender: FDA-Public Use
  Company Number: AUR-APL-2010-02821

PATIENT
  Age: 62 Year
  Sex: Male

DRUGS (3)
  1. ZOLPIDEM [Suspect]
     Indication: SLEEP DISORDER
     Dosage: 160-180MG - DAILY
  2. ESCITALOPRAM [Concomitant]
  3. DOMPERIDONE/ACETAMINOPHEN [Concomitant]

REACTIONS (3)
  - DELIRIUM [None]
  - DRUG DEPENDENCE [None]
  - WITHDRAWAL SYNDROME [None]
